FAERS Safety Report 13611974 (Version 1)
Quarter: 2017Q2

REPORT INFORMATION
  Report Type: Spontaneous
  Country: US (occurrence: US)
  Receive Date: 20170605
  Receipt Date: 20170605
  Transmission Date: 20170830
  Serious: Yes (Hospitalization)
  Sender: FDA-Public Use
  Company Number: None

PATIENT
  Age: 38 Year
  Sex: Male
  Weight: 88.65 kg

DRUGS (1)
  1. VIVITROL [Suspect]
     Active Substance: NALTREXONE
     Indication: DRUG USE DISORDER
     Dosage: ?          OTHER FREQUENCY:Q4 WEEKS;?
     Route: 030
     Dates: start: 20170328, end: 20170428

REACTIONS (2)
  - Injection site abscess [None]
  - Muscle abscess [None]

NARRATIVE: CASE EVENT DATE: 20170512
